FAERS Safety Report 16132296 (Version 2)
Quarter: 2019Q2

REPORT INFORMATION
  Report Type: Report from Study
  Country: IT (occurrence: IT)
  Receive Date: 20190329
  Receipt Date: 20190413
  Transmission Date: 20190711
  Serious: Yes (Other)
  Sender: FDA-Public Use
  Company Number: IT-BRISTOL-MYERS SQUIBB COMPANY-BMS-2018-056602

PATIENT
  Sex: Female

DRUGS (1)
  1. ABATACEPT [Suspect]
     Active Substance: ABATACEPT
     Indication: RHEUMATOID ARTHRITIS
     Dosage: 125 MG, QWK
     Route: 065
     Dates: start: 20180424

REACTIONS (5)
  - Influenza [Not Recovered/Not Resolved]
  - Uterine prolapse [Recovering/Resolving]
  - Nasopharyngitis [Not Recovered/Not Resolved]
  - Cystocele [Recovering/Resolving]
  - Cystitis [Recovering/Resolving]
